FAERS Safety Report 16039448 (Version 8)
Quarter: 2019Q2

REPORT INFORMATION
  Report Type: Spontaneous
  Country: US (occurrence: US)
  Receive Date: 20190306
  Receipt Date: 20190618
  Transmission Date: 20190711
  Serious: Yes (Other)
  Sender: FDA-Public Use
  Company Number: US-GLAXOSMITHKLINE-US2019GSK040685

PATIENT
  Sex: Female

DRUGS (10)
  1. ESOMEPRAZOLE. [Suspect]
     Active Substance: ESOMEPRAZOLE MAGNESIUM
     Indication: PRODUCT USED FOR UNKNOWN INDICATION
     Dosage: 40 MG, UNK
     Route: 065
  2. PREVACID [Suspect]
     Active Substance: LANSOPRAZOLE
     Dosage: 30 MG, QD
     Route: 048
  3. OMEPRAZOLE. [Suspect]
     Active Substance: OMEPRAZOLE
     Indication: GASTROOESOPHAGEAL REFLUX DISEASE
     Dosage: 20 MG, BID
     Route: 048
  4. OMEPRAZOLE. [Suspect]
     Active Substance: OMEPRAZOLE
     Dosage: 60 MG, QD
     Route: 048
  5. OMEPRAZOLE. [Suspect]
     Active Substance: OMEPRAZOLE
     Indication: GASTROOESOPHAGEAL REFLUX DISEASE
     Dosage: 30 MG, UNK
     Route: 048
  6. LANSOPRAZOLE. [Suspect]
     Active Substance: LANSOPRAZOLE
     Indication: GASTROOESOPHAGEAL REFLUX DISEASE
     Dosage: 30 MG, QD
     Route: 065
  7. PREVACID [Suspect]
     Active Substance: LANSOPRAZOLE
     Indication: PRODUCT USED FOR UNKNOWN INDICATION
     Dosage: 30 MG, BID
     Route: 048
  8. OMEPRAZOLE. [Suspect]
     Active Substance: OMEPRAZOLE
     Dosage: 20 MG, TID
     Route: 048
  9. OMEPRAZOLE. [Suspect]
     Active Substance: OMEPRAZOLE
     Dosage: 20 MG, BID
     Route: 048
  10. OMEPRAZOLE. [Suspect]
     Active Substance: OMEPRAZOLE
     Dosage: 20 MG, TID
     Route: 048

REACTIONS (21)
  - Chronic kidney disease [Unknown]
  - Renal impairment [Unknown]
  - Kidney infection [Unknown]
  - Acute kidney injury [Unknown]
  - Renal injury [Unknown]
  - Pyelocaliectasis [Unknown]
  - Renal cyst [Unknown]
  - Proteinuria [Unknown]
  - Renal failure [Unknown]
  - Nephrolithiasis [Unknown]
  - Hypertensive nephropathy [Unknown]
  - Microalbuminuria [Unknown]
  - Diabetic nephropathy [Unknown]
  - Pollakiuria [Unknown]
  - Nephrosclerosis [Unknown]
  - Extrarenal pelvis [Unknown]
  - Nephropathy [Unknown]
  - Ureteral disorder [Unknown]
  - Stress urinary incontinence [Unknown]
  - Nephrogenic anaemia [Unknown]
  - Renal disorder [Unknown]
